FAERS Safety Report 9146962 (Version 1)
Quarter: 2013Q1

REPORT INFORMATION
  Report Type: Report from Study
  Country: JP (occurrence: JP)
  Receive Date: 20130307
  Receipt Date: 20130307
  Transmission Date: 20140127
  Serious: Yes (Other)
  Sender: FDA-Public Use
  Company Number: JP-ROCHE-699292

PATIENT
  Age: 16 Year
  Sex: Female
  Weight: 46 kg

DRUGS (21)
  1. TOCILIZUMAB [Suspect]
     Indication: JUVENILE IDIOPATHIC ARTHRITIS
     Route: 041
     Dates: start: 20081118, end: 20081118
  2. TOCILIZUMAB [Suspect]
     Route: 041
     Dates: start: 20081216, end: 20081216
  3. TOCILIZUMAB [Suspect]
     Route: 041
     Dates: start: 20090113, end: 20090113
  4. TOCILIZUMAB [Suspect]
     Route: 041
     Dates: start: 20090210, end: 20090210
  5. TOCILIZUMAB [Suspect]
     Route: 041
     Dates: start: 20090303, end: 20090303
  6. TOCILIZUMAB [Suspect]
     Route: 041
     Dates: start: 20090331, end: 20090331
  7. TOCILIZUMAB [Suspect]
     Route: 041
  8. ISCOTIN [Suspect]
     Indication: JUVENILE IDIOPATHIC ARTHRITIS
     Dosage: DOSE FORM: PERORAL AGENT
     Route: 048
     Dates: start: 20081021, end: 20090330
  9. RHEUMATREX [Concomitant]
     Route: 048
     Dates: start: 20080725, end: 20080731
  10. RHEUMATREX [Concomitant]
     Route: 048
     Dates: start: 20080801, end: 20080825
  11. RHEUMATREX [Concomitant]
     Route: 048
  12. PREDNISOLONE [Concomitant]
     Dosage: DOSE FORM: PERORAL AGENT
     Route: 048
  13. PREDNISOLONE [Concomitant]
     Route: 048
     Dates: start: 20081216, end: 20090112
  14. PREDNISOLONE [Concomitant]
     Route: 048
     Dates: start: 20090113, end: 20090209
  15. PREDNISOLONE [Concomitant]
     Route: 048
     Dates: start: 20090210, end: 20090302
  16. CELCOX [Concomitant]
     Route: 048
  17. MUCOSTA [Concomitant]
     Dosage: DOSE FORM: PERORAL AGENT
     Route: 048
  18. ALFAROL [Concomitant]
     Dosage: DOSE FORM: PERORAL AGENT
     Route: 048
  19. FOLIAMIN [Concomitant]
     Dosage: DOSE FORM: PERORAL AGENT
     Route: 048
  20. PYDOXAL [Concomitant]
     Route: 048
  21. BEPOTASTINE [Concomitant]
     Route: 048
     Dates: start: 20081216, end: 20081216

REACTIONS (6)
  - Erythema [Recovered/Resolved]
  - Dyspnoea [Recovered/Resolved]
  - Nausea [Recovered/Resolved]
  - Pyrexia [Recovered/Resolved]
  - Gastroenteritis [Recovered/Resolved]
  - Hepatic function abnormal [Recovered/Resolved]
